FAERS Safety Report 19975214 (Version 2)
Quarter: 2022Q1

REPORT INFORMATION
  Report Type: Spontaneous
  Country: CA (occurrence: None)
  Receive Date: 20211020
  Receipt Date: 20220302
  Transmission Date: 20220423
  Serious: Yes (Other)
  Sender: FDA-Public Use
  Company Number: 2021A770495

PATIENT
  Age: 51 Year
  Sex: Male

DRUGS (6)
  1. SYMBICORT [Suspect]
     Active Substance: BUDESONIDE\FORMOTEROL FUMARATE DIHYDRATE
     Indication: Product used for unknown indication
     Dosage: UNKNOWN
     Route: 055
  2. OMEPRAZOLE [Suspect]
     Active Substance: OMEPRAZOLE
     Indication: Product used for unknown indication
     Dosage: UNKNOWN
     Route: 048
  3. NUCALA [Suspect]
     Active Substance: MEPOLIZUMAB
     Indication: Asthma
     Dosage: UNKNOWN
     Route: 042
     Dates: start: 20161108
  4. ALBUTEROL [Suspect]
     Active Substance: ALBUTEROL
     Indication: Product used for unknown indication
     Route: 065
  5. SPIRIVA [Suspect]
     Active Substance: TIOTROPIUM BROMIDE MONOHYDRATE
     Indication: Product used for unknown indication
     Route: 065
  6. ROSUVASTATIN [Concomitant]
     Active Substance: ROSUVASTATIN
     Dosage: UNKNOWN
     Route: 065

REACTIONS (18)
  - Asthma [Recovering/Resolving]
  - Full blood count abnormal [Unknown]
  - Chest discomfort [Unknown]
  - Cough [Unknown]
  - Ear pruritus [Unknown]
  - Eye irritation [Unknown]
  - Hypopnoea [Unknown]
  - Nasal congestion [Unknown]
  - Paranasal sinus discomfort [Unknown]
  - Respiratory tract infection [Unknown]
  - Rhinorrhoea [Unknown]
  - Sneezing [Unknown]
  - Dyspepsia [Unknown]
  - Dyspnoea [Unknown]
  - Pneumonitis [Unknown]
  - Upper-airway cough syndrome [Unknown]
  - Wheezing [Unknown]
  - Therapeutic product effect incomplete [Unknown]
